FAERS Safety Report 10978341 (Version 5)
Quarter: 2015Q3

REPORT INFORMATION
  Report Type: Report from Study
  Country: DK (occurrence: None)
  Receive Date: 20150331
  Receipt Date: 20150715
  Transmission Date: 20151125
  Serious: Yes (Life-Threatening, Hospitalization, Disabling, Other)
  Sender: FDA-Public Use
  Company Number: 2015SGN00459

PATIENT
  Age: 62 Year
  Sex: Male
  Weight: 81 kg

DRUGS (9)
  1. ALLOPURINOL (ALLOPURINOL) [Concomitant]
     Active Substance: ALLOPURINOL
  2. NEUPOGEN (FILGRASTIM) [Concomitant]
     Active Substance: FILGRASTIM
  3. ONDANSETRON. [Concomitant]
     Active Substance: ONDANSETRON
  4. DOXORUBICIN (DOXORUBICIN) INJECTION [Suspect]
     Active Substance: DOXORUBICIN
     Indication: HODGKIN^S DISEASE
     Dosage: 50.25
     Route: 042
     Dates: start: 20150113, end: 20150305
  5. BRENTUXIMAB VEDOTIN (BRENTUXIMAB VEDOTIN) INJECTION [Suspect]
     Active Substance: BRENTUXIMAB VEDOTIN
     Indication: HODGKIN^S DISEASE
     Route: 042
     Dates: start: 20150113, end: 20150305
  6. VINBLASTINE (VINBLASTINE SULFATE) INJECTION [Suspect]
     Active Substance: VINBLASTINE
     Indication: HODGKIN^S DISEASE
     Dates: start: 20150113, end: 20150305
  7. DEXAMETHASONE (DEXAMETHASONE) [Concomitant]
     Active Substance: DEXAMETHASONE
  8. DACARBAZINE (DACARBAZINE) INJECTION [Suspect]
     Active Substance: DACARBAZINE
     Indication: HODGKIN^S DISEASE
     Route: 042
     Dates: start: 20150113, end: 20150305
  9. EMEND [Concomitant]
     Active Substance: APREPITANT

REACTIONS (10)
  - Blood sodium decreased [None]
  - Febrile neutropenia [None]
  - Platelet count increased [None]
  - White blood cell count decreased [None]
  - Cerebrovascular accident [None]
  - Carotid artery occlusion [None]
  - Hemiplegia [None]
  - Blood glucose increased [None]
  - Haemoglobin decreased [None]
  - Cerebral infarction [None]

NARRATIVE: CASE EVENT DATE: 20150314
